FAERS Safety Report 7292341-8 (Version None)
Quarter: 2011Q1

REPORT INFORMATION
  Report Type: 
  Country: None (occurrence: None)
  Receive Date: 20110215
  Receipt Date: 20100728
  Transmission Date: 20110831
  Serious: Yes (Other)
  Sender: FDA-Public Use
  Company Number: US-JNJFOC-20100800857

PATIENT
  Sex: Female

DRUGS (2)
  1. CARBOPLATIN [Suspect]
     Indication: ENDOMETRIAL CANCER RECURRENT
     Route: 065
  2. DOXIL [Suspect]
     Indication: ENDOMETRIAL CANCER RECURRENT
     Route: 042

REACTIONS (1)
  - SYNCOPE [None]
